FAERS Safety Report 16672131 (Version 43)
Quarter: 2024Q1

REPORT INFORMATION
  Report Type: Spontaneous
  Country: DE (occurrence: DE)
  Receive Date: 20190806
  Receipt Date: 20240212
  Transmission Date: 20240410
  Serious: Yes (Life-Threatening, Hospitalization, Other)
  Sender: FDA-Public Use
  Company Number: DE-002147023-PHHY2019DE168419

PATIENT
  Age: 79 Year
  Sex: Female
  Weight: 55 kg

DRUGS (28)
  1. FULVESTRANT [Suspect]
     Active Substance: FULVESTRANT
     Indication: Product used for unknown indication
     Dosage: UNK
     Route: 065
     Dates: start: 20190819
  2. LETROZOLE [Suspect]
     Active Substance: LETROZOLE
     Indication: Breast cancer metastatic
     Dosage: 2.5 MILLIGRAM, ONCE A DAY,2.5 MG, QD
     Route: 048
     Dates: start: 20190704, end: 20190819
  3. PALBOCICLIB [Suspect]
     Active Substance: PALBOCICLIB
     Indication: Breast cancer metastatic
     Dosage: 100 MILLIGRAM, ONCE A DAY(SCHEME 21 DAYS INTAKE, 7 DAYS PAUSE)
     Route: 065
     Dates: end: 20200601
  4. PALBOCICLIB [Suspect]
     Active Substance: PALBOCICLIB
     Dosage: 100 MILLIGRAM, CYCLICAL, (SCHEME 21 DAYS INTAKE, 7 DAYS PAUSE)
     Route: 048
     Dates: start: 20200114, end: 20200601
  5. PALBOCICLIB [Suspect]
     Active Substance: PALBOCICLIB
     Dosage: 100 MILLIGRAM, ONCE A DAY, (SCHEME 21 DAYS INTAKE, 7 DAYS PAUSE)
     Route: 048
     Dates: start: 20200603, end: 20200728
  6. PALBOCICLIB [Suspect]
     Active Substance: PALBOCICLIB
     Dosage: 100 MILLIGRAM, CYCLICAL(SCHEME 21 DAYS INTAKE, 7 DAYS PAUSE)
     Route: 048
     Dates: start: 20200812, end: 20210907
  7. PALBOCICLIB [Suspect]
     Active Substance: PALBOCICLIB
     Dosage: 100 MILLIGRAM, ONCE A DAY
     Route: 048
     Dates: start: 20200909, end: 20201103
  8. PALBOCICLIB [Suspect]
     Active Substance: PALBOCICLIB
     Dosage: 75 MILLIGRAM, CYCLICAL (SCHEME 21 DAYS INTAKE, 7 DAYS PAUSE)
     Route: 048
     Dates: start: 20220901, end: 20221102
  9. PALBOCICLIB [Suspect]
     Active Substance: PALBOCICLIB
     Dosage: 100 MILLIGRAM, CYCLICAL,  (SCHEME 21 DAYS INTAKE, 7 DAYS PAUSE)
     Route: 048
     Dates: start: 20210909, end: 20211103
  10. PALBOCICLIB [Suspect]
     Active Substance: PALBOCICLIB
     Dosage: 100 MILLIGRAM, ONCE A DAY, (SCHEME 21 DAYS INTAKE, 7 DAYS PAUSE)
     Route: 048
     Dates: start: 20211111, end: 20220823
  11. PALBOCICLIB [Suspect]
     Active Substance: PALBOCICLIB
     Dosage: 75 MILLIGRAM, CYCLICAL (SCHEME 21 DAYS INTAKE, 7 DAYS PAUSE)
     Route: 048
     Dates: start: 20221116, end: 20221129
  12. PALBOCICLIB [Suspect]
     Active Substance: PALBOCICLIB
     Dosage: 75 MILLIGRAM, CYCLICAL (SCHEME 21 DAYS INTAKE, 7 DAYS PAUSE)
     Route: 048
     Dates: start: 20221207
  13. KISQALI [Suspect]
     Active Substance: RIBOCICLIB
     Indication: Breast cancer metastatic
     Dosage: 600 MILLIGRAM, ONCE A DAY (21 DAYS INTAKE, 7 DAYS PAUSE)
     Route: 048
     Dates: start: 20190704, end: 20190717
  14. KISQALI [Suspect]
     Active Substance: RIBOCICLIB
     Dosage: UNK, ONCE A DAY
     Route: 048
     Dates: start: 20190718, end: 20190807
  15. KISQALI [Suspect]
     Active Substance: RIBOCICLIB
     Dosage: 400 MILLIGRAM, ONCE A DAY (21 DAYS INTAKE, 7 DAYS PAUSE)
     Route: 048
     Dates: start: 20190808, end: 20190808
  16. KISQALI [Suspect]
     Active Substance: RIBOCICLIB
     Dosage: UNK, ONCE A DAY
     Route: 048
     Dates: start: 20190809, end: 20190809
  17. TORSEMIDE [Suspect]
     Active Substance: TORSEMIDE
     Indication: Atrial fibrillation
     Dosage: 10 MILLIGRAM (A HALF IN THE MORNING)
     Route: 065
     Dates: start: 20200727, end: 20220901
  18. TORSEMIDE [Suspect]
     Active Substance: TORSEMIDE
     Indication: Oedema peripheral
     Dosage: 10 MILLIGRAM, EVERY MORNING, 1-0.5-0-0
     Route: 065
     Dates: start: 20230801, end: 20230828
  19. TORSEMIDE [Suspect]
     Active Substance: TORSEMIDE
     Indication: Pleural effusion
     Dosage: 10 MILLIGRAM, EVERY MORNING
     Route: 065
     Dates: start: 20230829
  20. TORSEMIDE [Suspect]
     Active Substance: TORSEMIDE
     Indication: Cardiac failure
     Dosage: 10 MILLIGRAM, EVERY MORNING, 1-0.5-0-0
     Route: 065
     Dates: start: 20230801, end: 20230828
  21. ASPIRIN [Concomitant]
     Active Substance: ASPIRIN
     Indication: Product used for unknown indication
     Dosage: 100 MILLIGRAM, ONCE A DAY AT NOON
     Route: 065
     Dates: start: 2000
  22. BISOPROLOL [Concomitant]
     Active Substance: BISOPROLOL\BISOPROLOL FUMARATE
     Indication: Product used for unknown indication
     Dosage: 0.5 MILLIGRAM, ONCE A DAY (0.5 DOSAGE FORM, QD (10/25 MG), (ONCE PER DAY IN THE MORNING)
     Route: 065
     Dates: start: 2000
  23. BISOPROLOL FUMARATE\HYDROCHLOROTHIAZIDE [Concomitant]
     Active Substance: BISOPROLOL FUMARATE\HYDROCHLOROTHIAZIDE
     Indication: Product used for unknown indication
     Dosage: 0.5 DOSAGE FORM, ONCE A DAY (1X/DAY IN THE MORNING )
     Route: 065
     Dates: start: 2000
  24. CALCIUM [Concomitant]
     Active Substance: CALCIUM
     Indication: Product used for unknown indication
     Dosage: 400 MILLIGRAM, ONCE A DAY AT NOON
     Route: 065
     Dates: start: 2016
  25. CHOLECALCIFEROL [Concomitant]
     Active Substance: CHOLECALCIFEROL
     Indication: Product used for unknown indication
     Dosage: 20000 INTERNATIONAL UNIT, MONTHLY
     Route: 065
     Dates: start: 2016
  26. LEVOTHYROXINE [Concomitant]
     Active Substance: LEVOTHYROXINE\LEVOTHYROXINE SODIUM
     Indication: Product used for unknown indication
     Dosage: 88 MICROGRAM, ONCE A DAY IN THE MORNING
     Route: 065
     Dates: start: 2011
  27. Novalgin [Concomitant]
     Indication: Product used for unknown indication
     Dosage: 500 MILLIGRAM, AS NECESSARY, (PRN)
     Route: 065
     Dates: start: 201904
  28. AMLODIPINE BESYLATE\OLMESARTAN MEDOXOMIL [Concomitant]
     Active Substance: AMLODIPINE BESYLATE\OLMESARTAN MEDOXOMIL
     Indication: Product used for unknown indication
     Dosage: 40 MILLIGRAM, ONCE A DAY IN THE MONING
     Route: 065
     Dates: start: 2019

REACTIONS (34)
  - Thrombocytopenia [Recovered/Resolved]
  - Leukopenia [Recovered/Resolved]
  - Neutropenia [Recovered/Resolved]
  - Asthenia [Unknown]
  - Nausea [Recovered/Resolved]
  - Vomiting [Recovered/Resolved]
  - General physical health deterioration [Recovered/Resolved]
  - Eastern Cooperative Oncology Group performance status worsened [Recovered/Resolved]
  - Renal failure [Recovering/Resolving]
  - Chronic kidney disease [Not Recovered/Not Resolved]
  - Blood creatinine increased [Recovering/Resolving]
  - Nephrolithiasis [Recovering/Resolving]
  - Glomerular filtration rate decreased [Recovering/Resolving]
  - Renal impairment [Not Recovered/Not Resolved]
  - Hyponatraemia [Recovering/Resolving]
  - Electrocardiogram QT prolonged [Recovered/Resolved]
  - Atrial fibrillation [Recovering/Resolving]
  - Hypertension [Recovered/Resolved]
  - Concomitant disease aggravated [Recovering/Resolving]
  - Cardiac failure [Not Recovered/Not Resolved]
  - Dry skin [Recovering/Resolving]
  - Dyspnoea [Not Recovered/Not Resolved]
  - Blood glucose increased [Recovering/Resolving]
  - Oedema peripheral [Recovering/Resolving]
  - Anaemia [Not Recovered/Not Resolved]
  - Cystitis [Recovered/Resolved]
  - Bronchitis [Recovered/Resolved]
  - Blood thyroid stimulating hormone increased [Recovered/Resolved]
  - Urinary tract infection [Recovered/Resolved]
  - Pleural effusion [Recovering/Resolving]
  - Blood alkaline phosphatase increased [Recovered/Resolved]
  - C-reactive protein increased [Not Recovered/Not Resolved]
  - Infection [Recovered/Resolved]
  - Product use in unapproved indication [Unknown]

NARRATIVE: CASE EVENT DATE: 20190716
